FAERS Safety Report 9638364 (Version 2)
Quarter: 2014Q1

REPORT INFORMATION
  Report Type: Spontaneous
  Country: GB (occurrence: GB)
  Receive Date: 20131022
  Receipt Date: 20140217
  Transmission Date: 20141002
  Serious: Yes (Other)
  Sender: FDA-Public Use
  Company Number: GB-GLAXOSMITHKLINE-B0930028A

PATIENT
  Age: 62 Year
  Sex: Female

DRUGS (8)
  1. FLIXONASE [Suspect]
     Indication: NASAL POLYPS
     Dosage: 2DROP TWICE PER DAY
     Route: 045
     Dates: start: 20131001, end: 201310
  2. KEPPRA [Concomitant]
  3. PHENYTOIN [Concomitant]
  4. CLOBAZAM [Concomitant]
  5. PREGABALIN [Concomitant]
  6. FOLIC ACID [Concomitant]
  7. CITALOPRAM [Concomitant]
  8. CALCICHEW D3 [Concomitant]

REACTIONS (1)
  - Grand mal convulsion [Not Recovered/Not Resolved]
